FAERS Safety Report 8251561-6 (Version None)
Quarter: 2012Q1

REPORT INFORMATION
  Report Type: 
  Country: None (occurrence: None)
  Receive Date: 20120322
  Receipt Date: 20111230
  Transmission Date: 20120608
  Serious: Yes (Hospitalization)
  Sender: FDA-Public Use
  Company Number: UTC-014064

PATIENT
  Age: 54 Year
  Sex: Female
  Weight: 90.9 kg

DRUGS (5)
  1. LETAIRIS [Concomitant]
  2. ASPIRIN [Concomitant]
  3. OXYGEN (OXYGEN) [Concomitant]
  4. TYVASO [Suspect]
     Indication: PULMONARY ARTERIAL HYPERTENSION
     Dosage: 216 MCG (54 MCG, 4 IN 1 D), INHALATION
     Route: 055
     Dates: start: 20100324
  5. TYVASO [Suspect]
     Indication: PULMONARY HYPERTENSION
     Dosage: 216 MCG (54 MCG, 4 IN 1 D), INHALATION
     Route: 055
     Dates: start: 20100324

REACTIONS (1)
  - SYNCOPE [None]
